FAERS Safety Report 23624143 (Version 1)
Quarter: 2024Q1

REPORT INFORMATION
  Report Type: Spontaneous
  Country: JP (occurrence: None)
  Receive Date: 20240312
  Receipt Date: 20240312
  Transmission Date: 20240410
  Serious: Yes (Death, Other)
  Sender: FDA-Public Use
  Company Number: 2024A059220

PATIENT
  Age: 62 Year
  Sex: Male

DRUGS (4)
  1. IMFINZI [Suspect]
     Active Substance: DURVALUMAB
     Indication: Small cell lung cancer
     Dosage: EVERY THREE WEEKS
     Route: 041
     Dates: start: 20210630, end: 2021
  2. IMFINZI [Suspect]
     Active Substance: DURVALUMAB
     Indication: Small cell lung cancer
     Dosage: EVERY FOUR WEEKS
     Route: 041
     Dates: start: 20211007
  3. CARBOPLATIN [Concomitant]
     Active Substance: CARBOPLATIN
     Indication: Small cell lung cancer
     Dosage: DOSE UNKNOWN
     Dates: start: 20210630
  4. ETOPOSIDE [Concomitant]
     Active Substance: ETOPOSIDE
     Indication: Small cell lung cancer
     Dosage: DOSE UNKNOWN, ON THE FIRST, SECOND AND THIRD DAYS OF EACH CYCLE
     Dates: start: 20210630

REACTIONS (2)
  - Acute myocardial infarction [Unknown]
  - COVID-19 [Fatal]

NARRATIVE: CASE EVENT DATE: 20230403
